FAERS Safety Report 16399992 (Version 3)
Quarter: 2020Q1

REPORT INFORMATION
  Report Type: Spontaneous
  Country: US (occurrence: US)
  Receive Date: 20190606
  Receipt Date: 20200107
  Transmission Date: 20200409
  Serious: No
  Sender: FDA-Public Use
  Company Number: US-SA-2019SA152173

PATIENT
  Age: 29 Year
  Sex: Female

DRUGS (8)
  1. MACROBID [CLARITHROMYCIN] [Concomitant]
     Active Substance: CLARITHROMYCIN
  2. ADIPEX-P [Concomitant]
     Active Substance: PHENTERMINE HYDROCHLORIDE
  3. ZYRTEC [Concomitant]
     Active Substance: CETIRIZINE HYDROCHLORIDE
  4. SINGULAIR [Concomitant]
     Active Substance: MONTELUKAST SODIUM
  5. HYDROXYZINE [Concomitant]
     Active Substance: HYDROXYZINE HYDROCHLORIDE
  6. DUPIXENT [Suspect]
     Active Substance: DUPILUMAB
     Dosage: 300 MG, QOW
     Route: 058
     Dates: start: 2019
  7. CYCLOSPORINE. [Concomitant]
     Active Substance: CYCLOSPORINE
  8. DUPIXENT [Suspect]
     Active Substance: DUPILUMAB
     Indication: DERMATITIS ATOPIC
     Dosage: 600 MG, 1X
     Route: 058
     Dates: start: 20190504, end: 20190504

REACTIONS (1)
  - Dermatitis atopic [Not Recovered/Not Resolved]

NARRATIVE: CASE EVENT DATE: 2019
